FAERS Safety Report 7320339-X (Version None)
Quarter: 2011Q1

REPORT INFORMATION
  Report Type: 
  Country: None (occurrence: None)
  Receive Date: 20110215
  Receipt Date: 20110203
  Transmission Date: 20110831
  Serious: Yes (Life-Threatening, Hospitalization)
  Sender: FDA-Public Use
  Company Number: 2011-00180

PATIENT
  Age: 65 Year
  Sex: Male

DRUGS (2)
  1. SIMVASTATIN [Suspect]
     Indication: HYPERCHOLESTEROLAEMIA
  2. FUSIDIC ACID [Suspect]
     Indication: SEPTIC ARTHRITIS STAPHYLOCOCCAL
     Dosage: ORAL
     Route: 048

REACTIONS (7)
  - HYPOXIA [None]
  - DRUG INTERACTION [None]
  - RENAL FAILURE ACUTE [None]
  - SEPTIC ARTHRITIS STAPHYLOCOCCAL [None]
  - HEPATIC STEATOSIS [None]
  - RHABDOMYOLYSIS [None]
  - HYPOTENSION [None]
